FAERS Safety Report 14614147 (Version 1)
Quarter: 2018Q1

REPORT INFORMATION
  Report Type: Spontaneous
  Country: FR (occurrence: FR)
  Receive Date: 20180308
  Receipt Date: 20180308
  Transmission Date: 20180509
  Serious: Yes (Life-Threatening, Hospitalization)
  Sender: FDA-Public Use
  Company Number: FR-PFIZER INC-2018094488

PATIENT
  Age: 50 Year
  Sex: Female
  Weight: 75 kg

DRUGS (3)
  1. ATRACURIUM BESILATE [Suspect]
     Active Substance: ATRACURIUM BESYLATE
     Indication: ENDOTRACHEAL INTUBATION
     Dosage: 24 MG, SINGLE
     Route: 042
     Dates: start: 20180125
  2. SUFENTANIL /00723502/ [Suspect]
     Active Substance: SUFENTANIL CITRATE
     Indication: GENERAL ANAESTHESIA
     Dosage: 15 UG, SINGLE
     Route: 042
     Dates: start: 20180125
  3. PROPOFOL. [Suspect]
     Active Substance: PROPOFOL
     Indication: GENERAL ANAESTHESIA
     Dosage: 200 MG, SINGLE
     Route: 042
     Dates: start: 20180125

REACTIONS (2)
  - Circulatory collapse [Recovered/Resolved]
  - Hypotension [Recovered/Resolved]

NARRATIVE: CASE EVENT DATE: 20180125
